FAERS Safety Report 8928589 (Version 3)
Quarter: 2015Q2

REPORT INFORMATION
  Report Type: Spontaneous
  Country: US (occurrence: US)
  Receive Date: 20121128
  Receipt Date: 20150618
  Transmission Date: 20150821
  Serious: Yes (Death, Congenital Anomaly, Other)
  Sender: FDA-Public Use
  Company Number: US-ELI_LILLY_AND_COMPANY-US201211005362

PATIENT
  Age: 7 Year
  Sex: Female

DRUGS (1)
  1. PROZAC [Suspect]
     Active Substance: FLUOXETINE HYDROCHLORIDE
     Indication: DEPRESSION
     Dosage: 1 DF, UNKNOWN
     Route: 064

REACTIONS (9)
  - Congenital jaw malformation [Unknown]
  - Foetal exposure during pregnancy [Recovered/Resolved]
  - Respiratory failure [Fatal]
  - Pneumonia [Fatal]
  - Congenital multiplex arthrogryposis [Unknown]
  - Joint dislocation [Unknown]
  - Cleft palate [Unknown]
  - Talipes [Unknown]
  - Gastrooesophageal reflux disease [Unknown]

NARRATIVE: CASE EVENT DATE: 20080103
